FAERS Safety Report 5243832-2 (Version None)
Quarter: 2007Q1

REPORT INFORMATION
  Report Type: 
  Country: None (occurrence: None)
  Receive Date: 20070220
  Receipt Date: 20070220
  Transmission Date: 20070707
  Serious: Yes (Hospitalization)
  Sender: FDA-Public Use
  Company Number: None

PATIENT
  Age: 65 Year
  Sex: Female

DRUGS (11)
  1. GLEEVEC [Suspect]
     Indication: GLIOBLASTOMA MULTIFORME
     Dosage: 400 MG QD
  2. HYDROXYUREA [Suspect]
     Dosage: 500 MG BID
     Dates: start: 20050823, end: 20070109
  3. RAD001 [Suspect]
     Dosage: 5 MG QD
     Dates: start: 20050823, end: 20070109
  4. TOPROL-XL [Concomitant]
  5. DECADRON [Concomitant]
  6. PEPCID [Concomitant]
  7. DILANTIN [Concomitant]
  8. LOVENOX [Concomitant]
  9. LEXAPRO [Concomitant]
  10. KEPPRA [Concomitant]
  11. ZOFRAN [Concomitant]

REACTIONS (6)
  - APHASIA [None]
  - CONVULSION [None]
  - DISEASE PROGRESSION [None]
  - DRUG LEVEL DECREASED [None]
  - MENTAL STATUS CHANGES [None]
  - NUCLEAR MAGNETIC RESONANCE IMAGING BRAIN ABNORMAL [None]
